FAERS Safety Report 19369806 (Version 5)
Quarter: 2021Q3

REPORT INFORMATION
  Report Type: Report from Study
  Country: US (occurrence: US)
  Receive Date: 20210603
  Receipt Date: 20210915
  Transmission Date: 20211014
  Serious: Yes (Other)
  Sender: FDA-Public Use
  Company Number: US-BIOVITRUM-2021US4487

PATIENT
  Age: 68 Year
  Sex: Female

DRUGS (7)
  1. FOLIC ACID. [Concomitant]
     Active Substance: FOLIC ACID
  2. PREDNISONE. [Concomitant]
     Active Substance: PREDNISONE
  3. CALCIUM [Concomitant]
     Active Substance: CALCIUM
  4. KINERET [Suspect]
     Active Substance: ANAKINRA
     Indication: PRODUCT USED FOR UNKNOWN INDICATION
     Route: 058
     Dates: start: 20210511
  5. MULTIVITAMINS [Concomitant]
     Active Substance: VITAMINS
  6. OMEGA [Concomitant]
  7. KINERET [Suspect]
     Active Substance: ANAKINRA
     Route: 058
     Dates: start: 20210607

REACTIONS (15)
  - Kidney infection [Unknown]
  - Urinary incontinence [Unknown]
  - Adverse reaction [Unknown]
  - Injection site reaction [Unknown]
  - Asthenia [Recovering/Resolving]
  - Injection site erythema [Unknown]
  - Injection site rash [Unknown]
  - Cough [Unknown]
  - Myalgia [Unknown]
  - Feeling abnormal [Unknown]
  - Injection site scar [Unknown]
  - Condition aggravated [Unknown]
  - Urinary tract infection [Unknown]
  - Injection site pain [Unknown]
  - Somnolence [Recovering/Resolving]

NARRATIVE: CASE EVENT DATE: 20210803
